FAERS Safety Report 8475321-6 (Version None)
Quarter: 2012Q2

REPORT INFORMATION
  Report Type: 
  Country: None (occurrence: None)
  Receive Date: 20120628
  Receipt Date: 20120621
  Transmission Date: 20120825
  Serious: Yes (Hospitalization, Other)
  Sender: FDA-Public Use
  Company Number: BR-BAXTER-2012BAX009554

PATIENT
  Age: 11 Year
  Sex: Female
  Weight: 45.5 kg

DRUGS (6)
  1. ANIDULAFUNGIN [Suspect]
     Indication: CANDIDIASIS
     Route: 042
     Dates: start: 20110722, end: 20110804
  2. MESNA [Concomitant]
     Route: 065
     Dates: start: 20110809, end: 20110811
  3. FLUCONAZOLE [Concomitant]
     Route: 065
     Dates: start: 20110805, end: 20110806
  4. ETOPOSIDE [Suspect]
     Indication: EWING'S SARCOMA
     Route: 042
     Dates: start: 20110809, end: 20110809
  5. HOLOXANE [Suspect]
     Indication: EWING'S SARCOMA
     Route: 042
     Dates: start: 20110809, end: 20110811
  6. BACTRIM [Concomitant]
     Route: 065
     Dates: start: 20110809

REACTIONS (2)
  - NEUTROPENIA [None]
  - HERPES ZOSTER INFECTION NEUROLOGICAL [None]
